FAERS Safety Report 9531814 (Version 1)
Quarter: 2013Q3

REPORT INFORMATION
  Report Type: Spontaneous
  Country: US (occurrence: None)
  Receive Date: 20130917
  Receipt Date: 20130917
  Transmission Date: 20140515
  Serious: Yes (Life-Threatening, Hospitalization)
  Sender: FDA-Public Use
  Company Number: None

PATIENT
  Age: 75 Year
  Sex: Male
  Weight: 87.7 kg

DRUGS (14)
  1. WARFARIN [Suspect]
     Indication: AORTIC VALVE REPLACEMENT
     Route: 048
     Dates: start: 20110503, end: 20110506
  2. HEPARIN [Concomitant]
  3. WARFARIN [Concomitant]
  4. ACETAMINOPHEN [Concomitant]
  5. AMOXICILLIN/FLAVULANATE [Concomitant]
  6. ATORVASTATIN [Concomitant]
  7. DOCUSATE [Concomitant]
  8. FUROSEMIDE [Concomitant]
  9. HYDROMORPHONE [Concomitant]
  10. INSULIN ASPART [Concomitant]
  11. LEVOTHYROXINE [Concomitant]
  12. METOPROLOL [Concomitant]
  13. SENNA [Concomitant]
  14. OXYCODONE [Concomitant]

REACTIONS (3)
  - Pyrexia [None]
  - Gastrointestinal haemorrhage [None]
  - Cholecystectomy [None]
